FAERS Safety Report 8586716-4 (Version None)
Quarter: 2012Q3

REPORT INFORMATION
  Report Type: 
  Country: None (occurrence: None)
  Receive Date: 20120810
  Receipt Date: 20120802
  Transmission Date: 20120928
  Serious: Yes (Other)
  Sender: FDA-Public Use
  Company Number: US-CELGENEUS-163-21880-12050221

PATIENT
  Sex: Male
  Weight: 107.14 kg

DRUGS (23)
  1. REVLIMID [Suspect]
     Dosage: 15 MILLIGRAM
     Route: 048
     Dates: start: 20120601
  2. MULTI-VITAMINS [Concomitant]
     Route: 065
  3. BEE POLLEN [Concomitant]
     Route: 065
  4. AMLODIPINE [Concomitant]
     Route: 065
  5. LISINOPRIL [Concomitant]
     Route: 065
  6. EPLERENONE [Concomitant]
     Route: 065
  7. FUROSEMIDE [Concomitant]
     Route: 065
  8. VITAMIN D [Concomitant]
     Route: 065
  9. PRAVASTATIN [Concomitant]
     Route: 065
  10. CARVEDILOL [Concomitant]
     Route: 065
  11. OMEPRAZOLE [Concomitant]
     Route: 065
  12. OXYBUTYNIN CHLORIDE [Concomitant]
     Route: 065
  13. GARLIC [Concomitant]
     Route: 065
  14. WARFARIN SODIUM [Concomitant]
     Route: 065
  15. COENZYME Q10 [Concomitant]
     Route: 065
  16. REVLIMID [Suspect]
     Indication: MULTIPLE MYELOMA
     Dosage: 25 MILLIGRAM
     Route: 048
     Dates: start: 20110729, end: 20110929
  17. REVLIMID [Suspect]
     Dosage: 25 MILLIGRAM
     Route: 048
     Dates: start: 20111125, end: 20120101
  18. FERROUS SULFATE TAB [Concomitant]
     Route: 065
  19. DEXAMETHASONE [Suspect]
     Route: 065
  20. FISH OIL [Concomitant]
     Route: 065
  21. CALTRATE + D [Concomitant]
     Route: 065
  22. METFORMIN HYDROCHLORIDE [Concomitant]
     Route: 065
  23. PROLIA [Concomitant]
     Route: 065

REACTIONS (10)
  - HYPERGLYCAEMIA [None]
  - RENAL IMPAIRMENT [None]
  - PLATELET COUNT DECREASED [None]
  - CONTUSION [None]
  - FATIGUE [None]
  - DRUG DOSE OMISSION [None]
  - INSOMNIA [None]
  - MALAISE [None]
  - PROTEIN URINE PRESENT [None]
  - BLOOD TEST ABNORMAL [None]
